FAERS Safety Report 26110870 (Version 1)
Quarter: 2025Q4

REPORT INFORMATION
  Report Type: Spontaneous
  Country: US (occurrence: None)
  Receive Date: 20251202
  Receipt Date: 20251202
  Transmission Date: 20260117
  Serious: Yes (Life-Threatening, Hospitalization, Other)
  Sender: ENDO
  Company Number: US-ENDO USA, INC.-2025-002375

PATIENT
  Age: 38 Year
  Sex: Male

DRUGS (1)
  1. AVEED [Suspect]
     Active Substance: TESTOSTERONE UNDECANOATE
     Indication: Hypogonadism
     Dosage: UNK UNKNOWN, UNKNOWN

REACTIONS (12)
  - Haemorrhage intracranial [Recovered/Resolved]
  - Renal artery occlusion [Recovered/Resolved]
  - Ischaemic cardiomyopathy [Recovered/Resolved]
  - Cardiac ventricular thrombosis [Recovered/Resolved]
  - Gastrointestinal haemorrhage [Recovered/Resolved]
  - Peripheral ischaemia [Recovered/Resolved]
  - Renal infarct [Recovered/Resolved]
  - Infarction [Recovered/Resolved]
  - Acute myocardial infarction [Recovered/Resolved]
  - Cerebrovascular accident [Recovered/Resolved]
  - Polycythaemia [Recovered/Resolved]
  - Cerebral infarction [Recovered/Resolved]
